FAERS Safety Report 6017207-2 (Version None)
Quarter: 2008Q4

REPORT INFORMATION
  Report Type: 
  Country: None (occurrence: None)
  Receive Date: 20081219
  Receipt Date: 20081209
  Transmission Date: 20090506
  Serious: Yes (Death)
  Sender: FDA-Public Use
  Company Number: RENA-1000310

PATIENT
  Age: 72 Year
  Sex: Male

DRUGS (3)
  1. RENAGEL [Suspect]
     Indication: HYPERPHOSPHATAEMIA
     Dosage: 3.2 G, TID, ORAL
     Route: 048
     Dates: start: 20070601
  2. CITRACAL (CALCIUM CITRATE) UNKNOWN [Concomitant]
  3. TUMS (CALCIUM CARBONATE) UNKNOWN [Concomitant]

REACTIONS (1)
  - ARRHYTHMIA [None]
